FAERS Safety Report 6723539-2 (Version None)
Quarter: 2010Q2

REPORT INFORMATION
  Report Type: 
  Country: None (occurrence: None)
  Receive Date: 20100513
  Receipt Date: 20100412
  Transmission Date: 20101027
  Serious: No
  Sender: FDA-Public Use
  Company Number: US-BAYER-201013160NA

PATIENT
  Age: 55 Year
  Sex: Female
  Weight: 103 kg

DRUGS (2)
  1. ULTRAVIST-300 PHARMACY BULK [Suspect]
     Indication: COMPUTERISED TOMOGRAM ABDOMEN
     Dosage: TOTAL DAILY DOSE: 80 ML  UNIT DOSE: 500 ML
     Route: 042
     Dates: start: 20100201, end: 20100201
  2. READI-CAT [Concomitant]
     Dosage: AS USED: 90 ML
     Route: 048
     Dates: start: 20100201, end: 20100201

REACTIONS (5)
  - ERYTHEMA [None]
  - HYPOAESTHESIA FACIAL [None]
  - OROPHARYNGEAL DISCOMFORT [None]
  - PARAESTHESIA [None]
  - URTICARIA [None]
